FAERS Safety Report 10079234 (Version 1)
Quarter: 2014Q2

REPORT INFORMATION
  Report Type: Spontaneous
  Country: FR (occurrence: FR)
  Receive Date: 20140415
  Receipt Date: 20140415
  Transmission Date: 20141212
  Serious: Yes (Hospitalization, Other)
  Sender: FDA-Public Use
  Company Number: FR-ASTRAZENECA-2014SE25561

PATIENT
  Age: 18248 Day
  Sex: Male
  Weight: 67 kg

DRUGS (12)
  1. ATACAND [Suspect]
     Route: 048
     Dates: end: 20130625
  2. ESIDREX [Suspect]
     Route: 048
     Dates: end: 20130625
  3. BACTRIM FORTE [Suspect]
     Indication: INFECTION
     Route: 048
     Dates: start: 20130610, end: 20130625
  4. OFLOCET [Suspect]
     Indication: INFECTION
     Route: 048
     Dates: start: 20130610, end: 20130625
  5. LANTUS [Concomitant]
     Indication: TYPE 1 DIABETES MELLITUS
     Route: 058
  6. NOVORAPID [Concomitant]
     Indication: TYPE 1 DIABETES MELLITUS
     Dosage: 10/10/7 IU DAILY
     Route: 058
  7. LERCAN [Concomitant]
     Route: 048
  8. NEBIVOLOL [Concomitant]
     Route: 048
  9. PLAVIX [Concomitant]
     Route: 048
  10. FOLINORAL [Concomitant]
     Route: 048
  11. PARACETAMOL [Concomitant]
     Route: 048
  12. ECONAZOLE [Concomitant]
     Route: 003

REACTIONS (4)
  - Bacterial infection [Unknown]
  - Fistula [Unknown]
  - Renal failure acute [Recovering/Resolving]
  - Hyperkalaemia [Recovered/Resolved]
